FAERS Safety Report 7371793-9 (Version None)
Quarter: 2011Q1

REPORT INFORMATION
  Report Type: 
  Country: None (occurrence: None)
  Receive Date: 20110324
  Receipt Date: 20110316
  Transmission Date: 20110831
  Serious: Yes (Death)
  Sender: FDA-Public Use
  Company Number: CO-ROCHE-765714

PATIENT
  Sex: Female

DRUGS (1)
  1. CELLCEPT [Suspect]
     Dosage: FREQUENCY REPORTED AS EVERY DAY.
     Route: 048
     Dates: start: 20090325

REACTIONS (1)
  - THROMBOCYTOPENIA [None]
